FAERS Safety Report 5228492-9 (Version None)
Quarter: 2007Q1

REPORT INFORMATION
  Report Type: 
  Country: None (occurrence: None)
  Receive Date: 20070131
  Receipt Date: 20070131
  Transmission Date: 20070707
  Serious: Yes (Life-Threatening, Hospitalization, Other)
  Sender: FDA-Public Use
  Company Number: None

PATIENT
  Age: 67 Year
  Sex: Male

DRUGS (1)
  1. THEOPHYLLINE [Suspect]
     Dosage: 600 MG BID PO
     Route: 048
     Dates: start: 20061026, end: 20061208

REACTIONS (5)
  - AGITATION [None]
  - DRUG LEVEL INCREASED [None]
  - HEADACHE [None]
  - NAUSEA [None]
  - VOMITING [None]
